FAERS Safety Report 23619799 (Version 2)
Quarter: 2024Q1

REPORT INFORMATION
  Report Type: Spontaneous
  Country: US (occurrence: US)
  Receive Date: 20240312
  Receipt Date: 20240318
  Transmission Date: 20240410
  Serious: No
  Sender: FDA-Public Use
  Company Number: US-AMGEN-USASP2024048597

PATIENT
  Sex: Female

DRUGS (6)
  1. OTEZLA [Suspect]
     Active Substance: APREMILAST
     Indication: Behcet^s syndrome
     Dosage: 30 MILLIGRAM, BID
     Route: 048
  2. PLAQUENIL [Concomitant]
     Active Substance: HYDROXYCHLOROQUINE SULFATE
  3. FERROUS SULFATE [Concomitant]
     Active Substance: FERROUS SULFATE
  4. PREDNISONE [Concomitant]
     Active Substance: PREDNISONE
  5. VITAMIN D [Concomitant]
     Active Substance: VITAMIN D NOS
  6. IBRANCE [Concomitant]
     Active Substance: PALBOCICLIB

REACTIONS (2)
  - Therapy interrupted [Unknown]
  - Swelling [Unknown]
